FAERS Safety Report 7040404-4 (Version None)
Quarter: 2010Q4

REPORT INFORMATION
  Report Type: 
  Country: None (occurrence: None)
  Receive Date: 20101008
  Receipt Date: 20101008
  Transmission Date: 20110411
  Serious: No
  Sender: FDA-Public Use
  Company Number: None

PATIENT
  Age: 65 Year
  Sex: Female
  Weight: 62.1428 kg

DRUGS (2)
  1. EVISTA [Suspect]
     Indication: FAMILIAL RISK FACTOR
     Dosage: 1 TABLET DAILY
     Dates: start: 20100316, end: 20100520
  2. EVISTA [Suspect]
     Indication: OSTEOPENIA
     Dosage: 1 TABLET DAILY
     Dates: start: 20100316, end: 20100520

REACTIONS (14)
  - ABDOMINAL DISTENSION [None]
  - ACTIVITIES OF DAILY LIVING IMPAIRED [None]
  - ARTHRALGIA [None]
  - BACK PAIN [None]
  - CHEST PAIN [None]
  - DEPRESSION [None]
  - DIZZINESS [None]
  - DYSPEPSIA [None]
  - FLATULENCE [None]
  - HEMIPARESIS [None]
  - MUSCULOSKELETAL PAIN [None]
  - NAUSEA [None]
  - PAIN IN EXTREMITY [None]
  - SYNCOPE [None]
